FAERS Safety Report 5284568-1 (Version None)
Quarter: 2007Q1

REPORT INFORMATION
  Report Type: 
  Country: None (occurrence: None)
  Receive Date: 20061215
  Receipt Date: 20060420
  Transmission Date: 20070707
  Serious: Yes (Hospitalization)
  Sender: FDA-Public Use
  Company Number: HQWYE919421APR06

PATIENT
  Age: 53 Year
  Sex: Female

DRUGS (7)
  1. EFFEXOR XR [Suspect]
     Indication: MEMORY IMPAIRMENT
     Dosage: SEE IMAGE
     Route: 048
     Dates: end: 20050101
  2. EFFEXOR XR [Suspect]
     Indication: MEMORY IMPAIRMENT
     Dosage: SEE IMAGE
     Route: 048
     Dates: start: 20050101, end: 20051201
  3. EFFEXOR XR [Suspect]
     Indication: MEMORY IMPAIRMENT
     Dosage: SEE IMAGE
     Route: 048
     Dates: start: 20060201, end: 20060101
  4. EFFEXOR XR [Suspect]
     Indication: MEMORY IMPAIRMENT
     Dosage: SEE IMAGE
     Route: 048
     Dates: start: 20051201, end: 20060201
  5. EFFEXOR XR [Suspect]
     Indication: MEMORY IMPAIRMENT
     Dosage: SEE IMAGE
     Route: 048
     Dates: start: 20060101, end: 20060301
  6. SYNTHROID [Concomitant]
  7. ALPRAZOLAM [Concomitant]

REACTIONS (8)
  - ANXIETY [None]
  - DIZZINESS [None]
  - DRUG WITHDRAWAL SYNDROME [None]
  - HEADACHE [None]
  - HYPERHIDROSIS [None]
  - NIGHTMARE [None]
  - PALPITATIONS [None]
  - SUICIDE ATTEMPT [None]
